FAERS Safety Report 16711733 (Version 3)
Quarter: 2019Q4

REPORT INFORMATION
  Report Type: Report from Study
  Country: US (occurrence: US)
  Receive Date: 20190816
  Receipt Date: 20191002
  Transmission Date: 20200122
  Serious: No
  Sender: FDA-Public Use
  Company Number: US-SA-2019SA226110

PATIENT
  Age: 37 Year
  Sex: Male

DRUGS (2)
  1. TERIFLUNOMIDE. [Suspect]
     Active Substance: TERIFLUNOMIDE
     Indication: MULTIPLE SCLEROSIS
     Dosage: 14 MG, QD, MISSED 3 TO 4 DAYS OF AUBAGIO
     Route: 048
     Dates: start: 20190719
  2. TERIFLUNOMIDE. [Suspect]
     Active Substance: TERIFLUNOMIDE
     Dosage: 14 MG, QD,
     Route: 048
     Dates: start: 2019

REACTIONS (3)
  - Product dose omission [Unknown]
  - Constipation [Unknown]
  - Initial insomnia [Unknown]

NARRATIVE: CASE EVENT DATE: 2019
